FAERS Safety Report 21011048 (Version 1)
Quarter: 2022Q2

REPORT INFORMATION
  Report Type: Spontaneous
  Country: CN (occurrence: CN)
  Receive Date: 20220627
  Receipt Date: 20220627
  Transmission Date: 20220721
  Serious: Yes (Life-Threatening, Hospitalization, Other)
  Sender: FDA-Public Use
  Company Number: CN-PFIZER INC-PV202200008598

PATIENT
  Age: 62 Year
  Sex: Male
  Weight: 65 kg

DRUGS (2)
  1. METHYLPREDNISOLONE [Suspect]
     Active Substance: METHYLPREDNISOLONE
     Indication: Immunosuppression
     Dosage: 8.000 MG, 1X/DAY
     Route: 048
     Dates: start: 20220425, end: 20220603
  2. ETORICOXIB [Suspect]
     Active Substance: ETORICOXIB
     Indication: Analgesic therapy
     Dosage: 60.000 MG, 1X/DAY
     Route: 048
     Dates: start: 20220425, end: 20220603

REACTIONS (2)
  - Duodenal ulcer perforation [Recovering/Resolving]
  - Peritonitis [Recovering/Resolving]

NARRATIVE: CASE EVENT DATE: 20220603
